FAERS Safety Report 9038439 (Version 1)
Quarter: 2013Q1

REPORT INFORMATION
  Report Type: Report from Study
  Country: US (occurrence: US)
  Receive Date: 20130130
  Receipt Date: 20130130
  Transmission Date: 20140127
  Serious: No
  Sender: FDA-Public Use
  Company Number: US-ABBOTT-12P-163-0952015-00

PATIENT
  Age: 53 Year
  Sex: Female

DRUGS (7)
  1. HUMIRA 40 MG/0.8 ML PEN [Suspect]
     Indication: CROHN^S DISEASE
     Dates: start: 20120524, end: 20120524
  2. HUMIRA 40 MG/0.8 ML PEN [Suspect]
     Dates: start: 20120607, end: 20120607
  3. HUMIRA 40 MG/0.8 ML PEN [Suspect]
     Dates: start: 20120621
  4. PREDNISONE [Suspect]
     Indication: PRODUCT USED FOR UNKNOWN INDICATION
     Dosage: 5MG TAPERING DOSE
  5. SYNTHYROID [Concomitant]
     Indication: HYPOTHYROIDISM
     Dosage: 112MCG DAILY
  6. URSO FORTE [Concomitant]
     Indication: BILIARY CIRRHOSIS PRIMARY
  7. MULTIVITAMIN [Concomitant]
     Indication: VITAMIN SUPPLEMENTATION

REACTIONS (5)
  - Retching [Not Recovered/Not Resolved]
  - Nausea [Not Recovered/Not Resolved]
  - Influenza like illness [Not Recovered/Not Resolved]
  - Feeling abnormal [Not Recovered/Not Resolved]
  - Wrong technique in drug usage process [Not Recovered/Not Resolved]
